FAERS Safety Report 7653377 (Version 2)
Quarter: 2013Q1

REPORT INFORMATION
  Report Type: Spontaneous
  Country: KR (occurrence: KR)
  Receive Date: 20101102
  Receipt Date: 20130312
  Transmission Date: 20140127
  Serious: Yes (Other)
  Sender: FDA-Public Use
  Company Number: KR-PFIZER INC-2010135603

PATIENT
  Age: 79 Year
  Sex: Female

DRUGS (1)
  1. DETRUSITOL SR [Suspect]
     Dosage: 2 MG, 2X/DAY
     Route: 048

REACTIONS (2)
  - Medication error [Unknown]
  - Glaucoma [Unknown]
